FAERS Safety Report 7600048-X (Version None)
Quarter: 2011Q3

REPORT INFORMATION
  Report Type: 
  Country: None (occurrence: None)
  Receive Date: 20110711
  Receipt Date: 20110628
  Transmission Date: 20111222
  Serious: Yes (Hospitalization, Other)
  Sender: FDA-Public Use
  Company Number: US-BAYER-2011-015973

PATIENT
  Age: 23 Year
  Sex: Female
  Weight: 97.506 kg

DRUGS (12)
  1. YAZ [Suspect]
     Indication: CONTRACEPTION
     Dosage: UNK
     Route: 048
     Dates: start: 20050901, end: 20090101
  2. YAZ [Suspect]
     Indication: ACNE
  3. ZITHROMAX [Concomitant]
  4. YASMIN [Suspect]
     Indication: CONTRACEPTION
     Dosage: UNK
     Route: 048
     Dates: start: 20050901, end: 20090101
  5. ANTIBIOTICS [Concomitant]
  6. YASMIN [Suspect]
     Indication: ACNE
  7. TYLENOL-500 [Concomitant]
  8. RESPIRATORY SYSTEM [Concomitant]
  9. YAZ [Suspect]
     Indication: PREMENSTRUAL SYNDROME
  10. YASMIN [Suspect]
     Indication: PREMENSTRUAL SYNDROME
  11. FLUOXETINE [Concomitant]
     Dosage: UNK
     Dates: start: 20070101, end: 20090101
  12. IBUPROFEN [Concomitant]

REACTIONS (4)
  - PULMONARY EMBOLISM [None]
  - THROMBOSIS [None]
  - PAIN [None]
  - ANXIETY [None]
